FAERS Safety Report 5635972-0 (Version None)
Quarter: 2008Q1

REPORT INFORMATION
  Report Type: 
  Country: None (occurrence: None)
  Receive Date: 20080224
  Receipt Date: 20080220
  Transmission Date: 20080703
  Serious: Yes (Death, Other)
  Sender: FDA-Public Use
  Company Number: PHHY2008CA00446

PATIENT
  Age: 48 Year
  Sex: Male

DRUGS (2)
  1. CLOZARIL [Suspect]
     Indication: SCHIZOPHRENIA
     Dosage: 600 MG/DAY
     Route: 048
     Dates: start: 20000101
  2. TRAZODONE HCL [Concomitant]
     Dosage: 150 MG, QHS
     Route: 048

REACTIONS (7)
  - ARRHYTHMIA [None]
  - CARDIAC FAILURE CONGESTIVE [None]
  - HYPOXIA [None]
  - PNEUMONIA [None]
  - RESPIRATORY DISORDER [None]
  - TRACHEOBRONCHITIS [None]
  - UPPER RESPIRATORY TRACT INFECTION [None]
